FAERS Safety Report 7018089-2 (Version None)
Quarter: 2010Q3

REPORT INFORMATION
  Report Type: 
  Country: None (occurrence: None)
  Receive Date: 20100928
  Receipt Date: 20100923
  Transmission Date: 20110219
  Serious: Yes (Other)
  Sender: FDA-Public Use
  Company Number: DE-GENZYME-CERZ-1001508

PATIENT

DRUGS (6)
  1. CEREZYME [Suspect]
     Indication: GAUCHER'S DISEASE
     Dosage: UNK
     Route: 042
  2. LEVOTHYROXINE SODIUM [Concomitant]
     Indication: HYPOTHYROIDISM
  3. VERAPAMIL [Concomitant]
     Indication: PRODUCT USED FOR UNKNOWN INDICATION
     Dosage: 240 UNK, UNK
  4. CORDINATE PLUS [Concomitant]
     Indication: HYPERTENSION
     Dosage: 160 UNK, UNK
  5. HCT [Concomitant]
     Indication: HYPERTENSION
     Dosage: 125 MG, UNK
  6. SIMVASTATIN [Concomitant]
     Indication: LIPIDS INCREASED
     Dosage: 20 MG, UNK

REACTIONS (2)
  - CATARACT [None]
  - GLAUCOMA [None]
